FAERS Safety Report 6616242-0 (Version None)
Quarter: 2010Q1

REPORT INFORMATION
  Report Type: 
  Country: None (occurrence: None)
  Receive Date: 20100305
  Receipt Date: 20100225
  Transmission Date: 20100710
  Serious: Yes (Other)
  Sender: FDA-Public Use
  Company Number: US-SANOFI-AVENTIS-2010SA011736

PATIENT
  Sex: Male

DRUGS (1)
  1. LANTUS [Suspect]
     Route: 058

REACTIONS (4)
  - BRAIN INJURY [None]
  - CARDIAC OPERATION [None]
  - HYPERGLYCAEMIA [None]
  - IMPLANTABLE DEFIBRILLATOR INSERTION [None]
